FAERS Safety Report 25876978 (Version 1)
Quarter: 2025Q4

REPORT INFORMATION
  Report Type: Spontaneous
  Country: EU (occurrence: EU)
  Receive Date: 20251003
  Receipt Date: 20251003
  Transmission Date: 20260117
  Serious: Yes (Other)
  Sender: TEVA
  Company Number: None

PATIENT
  Age: 58 Year
  Sex: Female
  Weight: 57 kg

DRUGS (1)
  1. CAPECITABINE [Suspect]
     Active Substance: CAPECITABINE
     Indication: Breast cancer
     Dosage: 2X PER DAY 2 PIECES (2000MG/DAY) 14 DAYS, 7 DAYS STOP; TABLET FO / BRAND NAME NOT SPECIFIED
     Route: 048
     Dates: start: 20250301, end: 20250322

REACTIONS (2)
  - Arteriospasm coronary [Recovered/Resolved]
  - Heart rate decreased [Recovered/Resolved]
